FAERS Safety Report 19287426 (Version 1)
Quarter: 2021Q2

REPORT INFORMATION
  Report Type: Spontaneous
  Country: CN (occurrence: CN)
  Receive Date: 20210521
  Receipt Date: 20210521
  Transmission Date: 20210717
  Serious: Yes (Other)
  Sender: FDA-Public Use
  Company Number: CN-ROCHE-2831069

PATIENT
  Age: 34 Year
  Sex: Female

DRUGS (4)
  1. PERJETA [Suspect]
     Active Substance: PERTUZUMAB
     Indication: BREAST CANCER METASTATIC
     Dosage: TCBHP REGIMEN, THE FIRST DOSE, 3 WEEKS AS A CYCLE
     Route: 065
  2. CARBOPLATIN. [Concomitant]
     Active Substance: CARBOPLATIN
     Indication: BREAST CANCER METASTATIC
     Dosage: TCBHP REGIMEN, 3 WEEKS AS A CYCLE
  3. DOCETAXEL. [Concomitant]
     Active Substance: DOCETAXEL
     Indication: BREAST CANCER METASTATIC
     Dosage: TCBHP REGIMEN, 3 WEEKS AS A CYCLE
  4. HERCEPTIN [Suspect]
     Active Substance: TRASTUZUMAB
     Indication: BREAST CANCER METASTATIC
     Dosage: TCBHP REGIMEN, 3 WEEKS AS A CYCLE
     Route: 065

REACTIONS (3)
  - Gastrointestinal disorder [Unknown]
  - Myelosuppression [Unknown]
  - Alopecia [Unknown]
